FAERS Safety Report 6445128-X (Version None)
Quarter: 2009Q4

REPORT INFORMATION
  Report Type: 
  Country: None (occurrence: None)
  Receive Date: 20091116
  Receipt Date: 20091116
  Transmission Date: 20100525
  Serious: No
  Sender: FDA-Public Use
  Company Number: None

PATIENT
  Age: 90 Year

DRUGS (1)
  1. IMIPENEM AND CILASTATIN [Suspect]
     Indication: URINARY TRACT INFECTION
     Dosage: 500 MG OTHER IV
     Route: 042
     Dates: start: 20090904, end: 20090911

REACTIONS (2)
  - BLOOD GLUCOSE INCREASED [None]
  - GRAND MAL CONVULSION [None]
